FAERS Safety Report 8491989-2 (Version None)
Quarter: 2012Q3

REPORT INFORMATION
  Report Type: 
  Country: None (occurrence: None)
  Receive Date: 20120706
  Receipt Date: 20120629
  Transmission Date: 20120928
  Serious: Yes (Hospitalization, Other)
  Sender: FDA-Public Use
  Company Number: PHFR2012GB003761

PATIENT
  Sex: Male

DRUGS (1)
  1. CLOZARIL [Suspect]
     Indication: SCHIZOPHRENIA
     Dosage: UNK UKN, UNK
     Route: 048
     Dates: start: 20080910

REACTIONS (5)
  - INTESTINAL OBSTRUCTION [None]
  - DIARRHOEA [None]
  - CROHN'S DISEASE [None]
  - DEHYDRATION [None]
  - VOMITING [None]
